FAERS Safety Report 8395325-1 (Version None)
Quarter: 2012Q2

REPORT INFORMATION
  Report Type: 
  Country: None (occurrence: None)
  Receive Date: 20120530
  Receipt Date: 20120521
  Transmission Date: 20120825
  Serious: Yes (Hospitalization)
  Sender: FDA-Public Use
  Company Number: NL-MEDIMMUNE-MEDI-0013924

PATIENT
  Age: 6 Month
  Sex: Male
  Weight: 7.5 kg

DRUGS (11)
  1. SYNAGIS [Suspect]
     Route: 030
     Dates: start: 20111205, end: 20111205
  2. SYNAGIS [Suspect]
     Route: 030
     Dates: start: 20120113, end: 20120113
  3. SYNAGIS [Suspect]
     Route: 030
     Dates: start: 20111109, end: 20111109
  4. NEXIUM [Concomitant]
     Dates: start: 20110101
  5. SYNAGIS [Suspect]
     Route: 030
     Dates: start: 20120214, end: 20120214
  6. LEVETIRACETAM [Concomitant]
     Indication: EPILEPSY
     Dates: end: 20120201
  7. FERRO [Concomitant]
     Dates: start: 20110101
  8. SYNAGIS [Suspect]
     Route: 030
     Dates: start: 20111010, end: 20111010
  9. FOLIC ACID [Concomitant]
  10. ACTH [Concomitant]
     Dates: start: 20120103
  11. SYNAGIS [Suspect]
     Indication: PREMATURE BABY
     Route: 030
     Dates: start: 20110914, end: 20110914

REACTIONS (7)
  - RESPIRATORY TRACT INFECTION [None]
  - NASOPHARYNGITIS [None]
  - EPILEPSY [None]
  - HYPOPHAGIA [None]
  - MUSCLE SPASMS [None]
  - PYREXIA [None]
  - INFANTILE SPASMS [None]
